FAERS Safety Report 12898050 (Version 2)
Quarter: 2017Q1

REPORT INFORMATION
  Report Type: Report from Study
  Country: US (occurrence: US)
  Receive Date: 20161031
  Receipt Date: 20170131
  Transmission Date: 20170428
  Serious: Yes (Hospitalization)
  Sender: FDA-Public Use
  Company Number: US-KADMON PHARMACEUTICALS, LLC-KAD201610-003913

PATIENT
  Age: 56 Year
  Sex: Female

DRUGS (6)
  1. SPIRIVA [Concomitant]
     Active Substance: TIOTROPIUM BROMIDE MONOHYDRATE
     Dosage: TWO INHALATIONS DAILY (2.5 MCG)
     Route: 048
  2. RIBAVIRIN 200 MG TABLETS [Suspect]
     Active Substance: RIBAVIRIN
     Indication: CHRONIC HEPATITIS C
     Route: 048
     Dates: start: 20160915
  3. CYCLOBENZAPRINE 5 MG TABLETS [Concomitant]
     Dosage: AT BEDTIME (1 TABLET, 1 IN 1 DAY)
     Route: 048
  4. VIEKIRA PAK [Suspect]
     Active Substance: DASABUVIR\OMBITASVIR\PARITAPREVIR\RITONAVIR
     Indication: CHRONIC HEPATITIS C
     Dosage: TAKE 2 EVERY MORNING; DASABUVIR TABLETS - BID
     Route: 048
     Dates: start: 20160915
  5. ALBUTEROL HFA [Concomitant]
     Active Substance: ALBUTEROL SULFATE
     Indication: DYSPNOEA
     Dosage: 2 INHALATIONS EVERY 4 HOURS AS NEEDED (90 MCG)
     Route: 048
  6. QVAR [Concomitant]
     Active Substance: BECLOMETHASONE DIPROPIONATE
     Dosage: TWO INHALATIONS BY MOUTH TWICE DAILY
     Route: 048

REACTIONS (3)
  - Furuncle [Recovering/Resolving]
  - Sepsis [Recovered/Resolved with Sequelae]
  - Cellulitis [Recovering/Resolving]

NARRATIVE: CASE EVENT DATE: 20160919
